FAERS Safety Report 12772431 (Version 1)
Quarter: 2016Q3

REPORT INFORMATION
  Report Type: Spontaneous
  Country: US (occurrence: US)
  Receive Date: 20160922
  Receipt Date: 20160922
  Transmission Date: 20161109
  Serious: Yes (Hospitalization, Other)
  Sender: FDA-Public Use
  Company Number: US-PFIZER INC-2016396354

PATIENT
  Age: 52 Year
  Sex: Female

DRUGS (3)
  1. ST. JOHN^S WORT [Concomitant]
     Active Substance: ST. JOHN^S WORT
     Indication: DEPRESSION
     Dosage: 600 MG, DAILY
  2. CELERY. [Interacting]
     Active Substance: CELERY
     Indication: MENOPAUSAL DISORDER
     Dosage: 1000 MG, DAILY
  3. VENLAFAXINE HCL [Suspect]
     Active Substance: VENLAFAXINE HYDROCHLORIDE
     Indication: DEPRESSION
     Dosage: 75 MG, DAILY

REACTIONS (3)
  - Bipolar disorder [Recovered/Resolved]
  - Drug interaction [Recovered/Resolved]
  - Mania [Recovered/Resolved]
